FAERS Safety Report 11363331 (Version 1)
Quarter: 2015Q3

REPORT INFORMATION
  Report Type: Spontaneous
  Country: US (occurrence: US)
  Receive Date: 20150811
  Receipt Date: 20150811
  Transmission Date: 20151125
  Serious: No
  Sender: FDA-Public Use
  Company Number: US-TEVA-558688USA

PATIENT
  Sex: Female

DRUGS (1)
  1. CELECOXIB. [Suspect]
     Active Substance: CELECOXIB
     Dates: start: 20150308, end: 201503

REACTIONS (17)
  - Musculoskeletal discomfort [Unknown]
  - Headache [Unknown]
  - Back pain [Unknown]
  - Musculoskeletal pain [Unknown]
  - Arthralgia [Unknown]
  - Pain in extremity [Unknown]
  - Chills [Unknown]
  - Sleep disorder [Unknown]
  - Tearfulness [Unknown]
  - Spinal pain [Unknown]
  - Product substitution issue [Unknown]
  - Neck pain [Unknown]
  - Discomfort [Unknown]
  - Pain [Unknown]
  - Mobility decreased [Unknown]
  - Activities of daily living impaired [Unknown]
  - Pain in jaw [Unknown]

NARRATIVE: CASE EVENT DATE: 201503
